FAERS Safety Report 5441600-X (Version None)
Quarter: 2007Q3

REPORT INFORMATION
  Report Type: 
  Country: None (occurrence: None)
  Receive Date: 20070829
  Receipt Date: 20070818
  Transmission Date: 20080115
  Serious: Yes (Hospitalization, Other)
  Sender: FDA-Public Use
  Company Number: 2007-00831

PATIENT
  Age: 51 Year
  Sex: Male
  Weight: 70 kg

DRUGS (7)
  1. VELCADE [Suspect]
     Indication: MULTIPLE MYELOMA
     Dosage: 2.49 MG, INTRAVENOUS; 1.30 MG/M2, INTRAVENOUS
     Route: 042
     Dates: start: 20070113, end: 20070213
  2. VELCADE [Suspect]
     Indication: MULTIPLE MYELOMA
     Dosage: 2.49 MG, INTRAVENOUS; 1.30 MG/M2, INTRAVENOUS
     Route: 042
     Dates: start: 20070226
  3. DEXAMETHASONE 0.5MG TAB [Concomitant]
  4. EXACIN (ISEPAMICIN SULFATE) [Concomitant]
  5. CEFAZOLIN SODIUM [Concomitant]
  6. PURSENNID (SENNA LEAF) [Concomitant]
  7. MAGNESIUM OXIDE (MAGNESIUM OXIDE) [Concomitant]

REACTIONS (11)
  - ACANTHAMOEBA INFECTION [None]
  - BLINDNESS UNILATERAL [None]
  - CONSTIPATION [None]
  - CORNEAL EROSION [None]
  - DIARRHOEA [None]
  - DIZZINESS [None]
  - HERPES ZOSTER [None]
  - NEUROPATHY PERIPHERAL [None]
  - ULCERATIVE KERATITIS [None]
  - UPPER RESPIRATORY TRACT INFECTION [None]
  - VISION BLURRED [None]
